FAERS Safety Report 4734643-2 (Version None)
Quarter: 2005Q3

REPORT INFORMATION
  Report Type: 
  Country: None (occurrence: None)
  Receive Date: 20050721
  Receipt Date: 20050421
  Transmission Date: 20060218
  Serious: No
  Sender: FDA-Public Use
  Company Number: 2005SP000296

PATIENT
  Age: 54 Year
  Sex: Female
  Weight: 79.3795 kg

DRUGS (2)
  1. LUNESTA [Suspect]
     Indication: INSOMNIA
     Dosage: 2 MG; HS;ORAL; 3 MG;HS;ORAL
     Route: 048
     Dates: start: 20050401, end: 20050401
  2. LUNESTA [Suspect]
     Indication: INSOMNIA
     Dosage: 2 MG; HS;ORAL; 3 MG;HS;ORAL
     Route: 048
     Dates: start: 20050402, end: 20050401

REACTIONS (2)
  - ABNORMAL DREAMS [None]
  - ANXIETY [None]
